FAERS Safety Report 9299864 (Version 1)
Quarter: 2012Q4

REPORT INFORMATION
  Report Type: Spontaneous
  Country: CA (occurrence: None)
  Receive Date: 20121113
  Receipt Date: 20121113
  Transmission Date: 20130627
  Serious: Yes (Hospitalization)
  Sender: FDA-Public Use
  Company Number: 2012033836

PATIENT
  Age: 81 Year
  Sex: Male

DRUGS (1)
  1. PRIVIGEN [Suspect]
     Dosage: (not otherwise specified)
     Route: 042
     Dates: start: 20120830, end: 20120830

REACTIONS (5)
  - Pneumonia pseudomonas aeruginosa [None]
  - Tachycardia [None]
  - Blood pressure decreased [None]
  - Back pain [None]
  - Hypertension [None]
